FAERS Safety Report 10780039 (Version 1)
Quarter: 2015Q1

REPORT INFORMATION
  Report Type: Spontaneous
  Country: US (occurrence: None)
  Receive Date: 20150209
  Receipt Date: 20150209
  Transmission Date: 20150721
  Serious: Yes (Other)
  Sender: FDA-Public Use
  Company Number: None

PATIENT
  Age: 79 Year
  Sex: Male
  Weight: 70.31 kg

DRUGS (1)
  1. ROPINIROLE HCL 3 MG [Suspect]
     Active Substance: ROPINIROLE HYDROCHLORIDE
     Indication: PARKINSON^S DISEASE
     Dosage: 2 TABLETS 3X DAILY PILL?1 YR TO THIS DOSAGE ?LOWER DOSES SINCE 2008
     Dates: start: 2008

REACTIONS (4)
  - Paraphilia [None]
  - Sexually inappropriate behaviour [None]
  - Libido increased [None]
  - Sexual activity increased [None]

NARRATIVE: CASE EVENT DATE: 201407
